FAERS Safety Report 5276917-5 (Version None)
Quarter: 2007Q1

REPORT INFORMATION
  Report Type: 
  Country: None (occurrence: None)
  Receive Date: 20070327
  Receipt Date: 20070319
  Transmission Date: 20070707
  Serious: Yes (Other)
  Sender: FDA-Public Use
  Company Number: PHEH2007US03314

PATIENT

DRUGS (1)
  1. ZOMETA [Suspect]

REACTIONS (2)
  - DENTAL DISCOMFORT [None]
  - OSTEONECROSIS [None]
